FAERS Safety Report 20180945 (Version 1)
Quarter: 2021Q4

REPORT INFORMATION
  Report Type: Spontaneous
  Country: GR (occurrence: GR)
  Receive Date: 20211214
  Receipt Date: 20211214
  Transmission Date: 20220303
  Serious: Yes (Death, Hospitalization)
  Sender: FDA-Public Use
  Company Number: GR-BAYER-2021A263307

PATIENT
  Age: 66 Year
  Sex: Male

DRUGS (9)
  1. MOXIFLOXACIN [Suspect]
     Active Substance: MOXIFLOXACIN
     Indication: Superinfection bacterial
     Dosage: UNK
     Route: 042
     Dates: start: 20200331
  2. MOXIFLOXACIN [Suspect]
     Active Substance: MOXIFLOXACIN
     Indication: Pneumonia pseudomonal
  3. MOXIFLOXACIN [Suspect]
     Active Substance: MOXIFLOXACIN
     Indication: Pneumonia acinetobacter
  4. MEROPENEM [Suspect]
     Active Substance: MEROPENEM
     Indication: Superinfection bacterial
     Dosage: UNK
     Dates: start: 20200331
  5. MEROPENEM [Suspect]
     Active Substance: MEROPENEM
     Indication: Pneumonia pseudomonal
  6. MEROPENEM [Suspect]
     Active Substance: MEROPENEM
     Indication: Pneumonia acinetobacter
  7. LINEZOLID [Suspect]
     Active Substance: LINEZOLID
     Indication: Superinfection bacterial
     Dosage: UNK
     Dates: start: 20200331
  8. LINEZOLID [Suspect]
     Active Substance: LINEZOLID
     Indication: Pneumonia pseudomonal
  9. LINEZOLID [Suspect]
     Active Substance: LINEZOLID
     Indication: Pneumonia acinetobacter

REACTIONS (2)
  - Condition aggravated [Fatal]
  - Drug ineffective [None]

NARRATIVE: CASE EVENT DATE: 20200416
